FAERS Safety Report 22059143 (Version 1)
Quarter: 2023Q1

REPORT INFORMATION
  Report Type: Spontaneous
  Country: US (occurrence: US)
  Receive Date: 20230303
  Receipt Date: 20230303
  Transmission Date: 20230418
  Serious: No
  Sender: FDA-Public Use
  Company Number: US-MYLANLABS-2023M1020148

PATIENT
  Age: 80 Year
  Sex: Male

DRUGS (1)
  1. SEMGLEE (INSULIN GLARGINE-YFGN) [Suspect]
     Active Substance: INSULIN GLARGINE-YFGN
     Indication: Type 2 diabetes mellitus
     Dosage: 30 INTERNATIONAL UNIT
     Route: 058
     Dates: start: 20230201

REACTIONS (3)
  - Injection site hypertrophy [Unknown]
  - Injection site atrophy [Unknown]
  - Device malfunction [Unknown]

NARRATIVE: CASE EVENT DATE: 20230217
